FAERS Safety Report 17219483 (Version 2)
Quarter: 2020Q3

REPORT INFORMATION
  Report Type: Spontaneous
  Country: US (occurrence: US)
  Receive Date: 20191231
  Receipt Date: 20200701
  Transmission Date: 20201102
  Serious: No
  Sender: FDA-Public Use
  Company Number: US-PFIZER INC-2019557184

PATIENT
  Age: 68 Year
  Sex: Female
  Weight: 45.81 kg

DRUGS (3)
  1. LYRICA [Suspect]
     Active Substance: PREGABALIN
     Indication: DIABETIC NEUROPATHY
     Dosage: 150 MG, UNK
     Route: 048
  2. LYRICA [Suspect]
     Active Substance: PREGABALIN
     Dosage: 50 MG, 2X/DAY (50MG ONCE IN THE MORNING AND ONCE AT NIGHT)
     Route: 048
  3. LYRICA [Suspect]
     Active Substance: PREGABALIN
     Dosage: 75 MG, 3X/DAY
     Route: 048

REACTIONS (6)
  - Somnolence [Unknown]
  - Herpes zoster [Unknown]
  - Intentional product misuse [Unknown]
  - Drug ineffective [Unknown]
  - Condition aggravated [Unknown]
  - Product dose omission issue [Unknown]
